FAERS Safety Report 12246993 (Version 7)
Quarter: 2016Q4

REPORT INFORMATION
  Report Type: Report from Study
  Country: DE (occurrence: DE)
  Receive Date: 20160407
  Receipt Date: 20161213
  Transmission Date: 20170207
  Serious: Yes (Hospitalization)
  Sender: FDA-Public Use
  Company Number: DE-REGENERON PHARMACEUTICALS, INC.-2016-15082

PATIENT

DRUGS (16)
  1. EYLEA [Suspect]
     Active Substance: AFLIBERCEPT
     Indication: DIABETIC RETINAL OEDEMA
     Dosage: UNK
     Route: 031
     Dates: start: 20120107
  2. EYLEA [Suspect]
     Active Substance: AFLIBERCEPT
     Dosage: UNK
     Route: 031
     Dates: start: 20160602, end: 20160602
  3. EYLEA [Suspect]
     Active Substance: AFLIBERCEPT
     Dosage: UNK
     Route: 031
     Dates: start: 20160630, end: 20160630
  4. HUMALOG [Concomitant]
     Active Substance: INSULIN LISPRO
     Indication: TYPE 2 DIABETES MELLITUS
     Dosage: 100 E, PRN
     Route: 058
     Dates: start: 2000
  5. TORASEMID [Concomitant]
     Active Substance: TORSEMIDE
     Indication: HYPERTENSION
     Dosage: 10 MG DAILY DOSE
     Route: 048
     Dates: start: 20160331, end: 20160511
  6. NOVAMINSULFON [Concomitant]
     Active Substance: METAMIZOLE
     Indication: PAIN IN EXTREMITY
     Dosage: 2 X 500 MG
     Route: 048
     Dates: start: 20160512
  7. LISINOPRIL COMP [Concomitant]
     Indication: HYPERTENSION
     Dosage: 10/12.5 MG, QD
     Route: 048
     Dates: start: 2008
  8. TORASEMID [Concomitant]
     Active Substance: TORSEMIDE
     Dosage: 2 X 10 MG
     Route: 048
     Dates: start: 20160512
  9. EYLEA [Suspect]
     Active Substance: AFLIBERCEPT
     Dosage: 50 MICROLITRE(S), ONCE (TOTAL OF 18 INJECTIONS)
     Route: 031
     Dates: start: 20160307, end: 20160307
  10. LISINOPRIL. [Concomitant]
     Active Substance: LISINOPRIL
     Indication: HYPERTENSION
     Dosage: 5 MG, QD
     Route: 048
     Dates: start: 2008
  11. BERLINSULIN H BASAL [Concomitant]
     Active Substance: INSULIN HUMAN
     Indication: TYPE 2 DIABETES MELLITUS
     Dosage: 100 E, PRN
     Route: 058
     Dates: start: 2000
  12. NOVALGIN [Concomitant]
     Active Substance: METAMIZOLE SODIUM
     Indication: PAIN IN EXTREMITY
     Dosage: 2000 MG DAILY DOSE
     Route: 048
     Dates: start: 20160331, end: 20160511
  13. CLEXANE [Concomitant]
     Active Substance: ENOXAPARIN SODIUM
     Dosage: 2X60MG
     Route: 058
     Dates: start: 20160331
  14. ASPIRIN. [Concomitant]
     Active Substance: ASPIRIN
     Indication: STENT PLACEMENT
     Dosage: 100 MG, QD
     Route: 048
     Dates: start: 2008
  15. CLEXANE [Concomitant]
     Active Substance: ENOXAPARIN SODIUM
     Indication: THROMBOSIS PROPHYLAXIS
     Dosage: 120 MG DAILY DOSE
     Route: 048
     Dates: start: 20160331, end: 20160511
  16. SIMVASTATIN. [Concomitant]
     Active Substance: SIMVASTATIN
     Indication: HYPERCHOLESTEROLAEMIA
     Dosage: 40 MG, QD
     Route: 048
     Dates: start: 2008

REACTIONS (3)
  - Pain in extremity [Recovered/Resolved with Sequelae]
  - Peripheral arterial occlusive disease [Recovered/Resolved with Sequelae]
  - Peripheral vascular disorder [Recovered/Resolved]

NARRATIVE: CASE EVENT DATE: 20160330
